FAERS Safety Report 7603774-1 (Version None)
Quarter: 2011Q3

REPORT INFORMATION
  Report Type: 
  Country: None (occurrence: None)
  Receive Date: 20110712
  Receipt Date: 20110408
  Transmission Date: 20111222
  Serious: Yes (Hospitalization, Other)
  Sender: FDA-Public Use
  Company Number: US-GLAXOSMITHKLINE-A0922997A

PATIENT
  Age: 55 Year
  Sex: Male
  Weight: 137.7 kg

DRUGS (10)
  1. HYDROCODONE BITARTRATE AND ACETAMINOPHEN [Concomitant]
     Indication: PAIN
  2. ONDANSETRON [Concomitant]
     Indication: VOMITING
     Dosage: 8MG TWICE PER DAY
  3. UNKNOWN MEDICATION [Concomitant]
     Indication: DIARRHOEA
  4. LOPRESSOR [Concomitant]
     Dosage: 50MG TWICE PER DAY
  5. VOTRIENT [Suspect]
     Indication: RENAL CELL CARCINOMA
     Dosage: 800MG PER DAY
     Route: 048
     Dates: start: 20110101
  6. BACTRIM DS [Suspect]
     Indication: BRONCHITIS
     Route: 065
  7. ADVAIR DISKUS 100/50 [Concomitant]
     Route: 045
  8. FAMOTIDINE [Concomitant]
     Dosage: 20MG TWICE PER DAY
  9. CHEMOTHERAPY [Concomitant]
  10. LOVASTATIN [Concomitant]
     Dosage: 20MG PER DAY

REACTIONS (30)
  - FLUSHING [None]
  - MYALGIA [None]
  - DUODENITIS [None]
  - BRONCHITIS [None]
  - ABDOMINAL DISCOMFORT [None]
  - RENAL IMPAIRMENT [None]
  - PANCYTOPENIA [None]
  - INFLAMMATION [None]
  - PANCREATITIS [None]
  - DEHYDRATION [None]
  - DIARRHOEA [None]
  - DYSGEUSIA [None]
  - DISEASE PROGRESSION [None]
  - PEPTIC ULCER [None]
  - HERNIA [None]
  - CHOLELITHIASIS [None]
  - VOMITING [None]
  - REGURGITATION [None]
  - DRY MOUTH [None]
  - ABDOMINAL PAIN [None]
  - NAUSEA [None]
  - TONGUE GEOGRAPHIC [None]
  - RETCHING [None]
  - ARTHRALGIA [None]
  - GASTROINTESTINAL HAEMORRHAGE [None]
  - OESOPHAGITIS [None]
  - PYREXIA [None]
  - HEADACHE [None]
  - EPISTAXIS [None]
  - HAEMOGLOBIN INCREASED [None]
